FAERS Safety Report 10056676 (Version 1)
Quarter: 2014Q2

REPORT INFORMATION
  Report Type: Spontaneous
  Country: FR (occurrence: FR)
  Receive Date: 20140403
  Receipt Date: 20140403
  Transmission Date: 20141212
  Serious: Yes (Other)
  Sender: FDA-Public Use
  Company Number: FR-SA-2014SA036775

PATIENT
  Age: 70 Year
  Sex: Male

DRUGS (12)
  1. PLAVIX [Suspect]
     Indication: PRODUCT USED FOR UNKNOWN INDICATION
     Dosage: STRENGTH: 75 MG
     Route: 048
  2. COAPROVEL [Suspect]
     Indication: PRODUCT USED FOR UNKNOWN INDICATION
     Route: 048
  3. GLIVEC [Suspect]
     Indication: PRODUCT USED FOR UNKNOWN INDICATION
     Dosage: STRENGTH:400 MG
     Route: 048
     Dates: start: 20121029, end: 20121221
  4. GLIVEC [Suspect]
     Indication: PRODUCT USED FOR UNKNOWN INDICATION
     Dosage: STRENGTH:400 MG
     Route: 048
     Dates: start: 20121221
  5. INEXIUM [Suspect]
     Indication: PRODUCT USED FOR UNKNOWN INDICATION
     Dosage: STRENGTH: 40 MG
     Route: 048
  6. METFORMIN HYDROCHLORIDE/SITAGLIPTIN PHOSPHATE [Concomitant]
  7. LERCAN [Concomitant]
  8. CRESTOR [Concomitant]
  9. PERMIXON [Concomitant]
  10. TAMSULOSIN HYDROCHLORIDE [Concomitant]
  11. TARDYFERON [Concomitant]
  12. ALPRAZOLAM [Concomitant]

REACTIONS (2)
  - Lichen planus [Recovered/Resolved]
  - Toxic skin eruption [Recovered/Resolved]
